FAERS Safety Report 25126425 (Version 3)
Quarter: 2025Q2

REPORT INFORMATION
  Report Type: Spontaneous
  Country: TR (occurrence: TR)
  Receive Date: 20250327
  Receipt Date: 20250421
  Transmission Date: 20250716
  Serious: Yes (Other)
  Sender: ABBVIE
  Company Number: TR-ABBOTT-2025A-1397640

PATIENT
  Age: 47 Year
  Sex: Male

DRUGS (5)
  1. PANCRELIPASE [Suspect]
     Active Substance: PANCRELIPASE
     Indication: Pancreatic failure
     Dosage: KREON 25,000 IU ONCE AT NOON, KREON 25,000 IU ONCE AT EVENING.?KREON PHARM. EUR. UNIT HARD GELATI...
     Route: 048
     Dates: start: 2023
  2. PANCRELIPASE [Suspect]
     Active Substance: PANCRELIPASE
     Indication: Pancreatic failure
     Dosage: KREON PHARM. EUR. UNIT HARD GELATIN CAPSULE
     Route: 048
     Dates: start: 2023
  3. PANCRELIPASE [Suspect]
     Active Substance: PANCRELIPASE
     Indication: Pancreatic failure
     Dosage: KREON PHARM. EUR. UNIT HARD GELATIN CAPSULE
     Route: 048
     Dates: start: 2023
  4. PANCRELIPASE [Suspect]
     Active Substance: PANCRELIPASE
     Indication: Pancreatic failure
     Dosage: KREON 10,000 IU TWICE A DAY IN THE MORNING, ?KREON 10,000 IU DURING SNACK,?KREON PHARM. EUR. UNIT...
     Route: 048
     Dates: start: 2023
  5. PANCRELIPASE [Suspect]
     Active Substance: PANCRELIPASE
     Indication: Pancreatic failure
     Route: 048

REACTIONS (3)
  - Oropharyngeal pain [Not Recovered/Not Resolved]
  - Respiratory distress [Not Recovered/Not Resolved]
  - Dyspnoea [Not Recovered/Not Resolved]

NARRATIVE: CASE EVENT DATE: 20241201
